FAERS Safety Report 8276230-8 (Version None)
Quarter: 2012Q2

REPORT INFORMATION
  Report Type: 
  Country: None (occurrence: None)
  Receive Date: 20120409
  Receipt Date: 20120330
  Transmission Date: 20120825
  Serious: Yes (Hospitalization)
  Sender: FDA-Public Use
  Company Number: 2010SP020559

PATIENT
  Age: 11 Month
  Sex: Female
  Weight: 7 kg

DRUGS (25)
  1. ANUSOL HC [Suspect]
     Indication: PRODUCT USED FOR UNKNOWN INDICATION
     Dosage: 1 DFL QID; RTL
     Route: 054
     Dates: start: 20060328
  2. DESONIDE [Suspect]
     Indication: ECZEMA INFANTILE
     Dosage: 1 DF; BID; TOP
     Route: 061
     Dates: start: 20060110
  3. DESONIDE [Suspect]
     Indication: ECZEMA INFANTILE
     Dosage: 1 DF; BID; TOP
     Route: 061
     Dates: start: 20060821, end: 20060831
  4. DESONIDE [Suspect]
     Indication: ECZEMA INFANTILE
     Dosage: 1 DF; BID; TOP
     Route: 061
     Dates: start: 20060416
  5. CLOBETASOL PROPIONATE [Suspect]
     Indication: ECZEMA INFANTILE
     Dosage: 1 DF; BID; TOP
     Route: 061
     Dates: start: 20050225
  6. BETAMETHASONE DIPROPIONATE [Suspect]
     Indication: ECZEMA INFANTILE
     Dosage: 1 DF; BID, TOP
     Route: 061
     Dates: start: 20060821, end: 20060824
  7. CETAPHIL DAILY FACIAL MOISTURIZER SPF 15 [Concomitant]
  8. NEOCATE [Concomitant]
  9. CEPHALEXIN [Concomitant]
  10. DIPHENHYDRAMINE HCL [Concomitant]
  11. FUSIDIC ACID [Concomitant]
  12. BETAMETHASONE VALERATE [Suspect]
     Indication: ECZEMA INFANTILE
     Dosage: 1 DF; BID; TOP
     Route: 061
     Dates: start: 20060823, end: 20060831
  13. EUCERIN UREA 10% [Concomitant]
  14. TACROLIMUS [Concomitant]
  15. ELOCON [Suspect]
     Indication: ECZEMA INFANTILE
     Dosage: 1 DF; QD; TOP
     Route: 061
     Dates: start: 20060801
  16. ZINC SULPHATE [Concomitant]
  17. HYDROCORTISONE [Suspect]
     Indication: ECZEMA INFANTILE
     Dosage: 1 DF; TID; TOP
     Route: 061
     Dates: start: 20060522
  18. HYDROXYZINE [Concomitant]
  19. MOMETASONE FUROATE [Suspect]
     Indication: ECZEMA INFANTILE
     Dosage: 1 DF; BID; TOP, 1 DF; QID; TOP
     Route: 061
     Dates: start: 20060824, end: 20060831
  20. HYDROCORTISONE [Suspect]
     Indication: ECZEMA INFANTILE
     Dosage: 1 DF; BID
     Dates: start: 20060514
  21. HYDROCORTISONE VALERATE [Suspect]
     Indication: ECZEMA INFANTILE
     Dosage: 1 DF; BID; TOP
     Route: 061
     Dates: start: 20060110
  22. CLOTRIMAZOLE [Concomitant]
  23. CLOXACILLIN SODIUM [Concomitant]
  24. DOXEPIN HYDROCHLORIDE [Concomitant]
  25. KETOTIFEN FUMARATE [Concomitant]

REACTIONS (9)
  - ECHOCARDIOGRAM ABNORMAL [None]
  - COARCTATION OF THE AORTA [None]
  - CUSHING'S SYNDROME [None]
  - HYPERCORTICOIDISM [None]
  - HYPOTHALAMO-PITUITARY DISORDER [None]
  - LEFT VENTRICULAR HYPERTROPHY [None]
  - NUCLEAR MAGNETIC RESONANCE IMAGING ABNORMAL [None]
  - BLOOD CORTISOL DECREASED [None]
  - GROWTH RETARDATION [None]
